FAERS Safety Report 6661209-X (Version None)
Quarter: 2010Q1

REPORT INFORMATION
  Report Type: 
  Country: None (occurrence: None)
  Receive Date: 20100331
  Receipt Date: 20100201
  Transmission Date: 20100710
  Serious: Yes (Hospitalization)
  Sender: FDA-Public Use
  Company Number: US-ROCHE-693550

PATIENT
  Sex: Male
  Weight: 114.3 kg

DRUGS (11)
  1. BEVACIZUMAB [Suspect]
     Indication: NON-SMALL CELL LUNG CANCER
     Route: 042
     Dates: start: 20100111
  2. PEMETREXED [Suspect]
     Route: 042
     Dates: start: 20100111
  3. CARBOPLATIN [Suspect]
     Route: 042
     Dates: start: 20100111
  4. AMARYL [Concomitant]
     Route: 048
  5. AVANDIA [Concomitant]
     Route: 048
  6. COREG [Concomitant]
     Route: 048
  7. LOTREL [Concomitant]
     Dosage: 5/20 MG DAILY
     Route: 048
  8. PROTONIX [Concomitant]
     Route: 048
  9. PERCOCET [Concomitant]
     Indication: PAIN
  10. PERCHLORACAP [Concomitant]
     Indication: VOMITING
     Dosage: Q6 PRN
  11. FOLIC ACID [Concomitant]
     Route: 048

REACTIONS (2)
  - CONVULSION [None]
  - MENTAL STATUS CHANGES [None]
